FAERS Safety Report 22604043 (Version 1)
Quarter: 2023Q2

REPORT INFORMATION
  Report Type: Spontaneous
  Country: CN (occurrence: CN)
  Receive Date: 20230615
  Receipt Date: 20230615
  Transmission Date: 20230722
  Serious: Yes (Hospitalization)
  Sender: FDA-Public Use
  Company Number: CN-002147023-NVSC2023CN134975

PATIENT
  Age: 59 Year
  Sex: Male

DRUGS (5)
  1. SECUKINUMAB [Suspect]
     Active Substance: SECUKINUMAB
     Indication: Psoriasis
     Dosage: 300 MG, QW (0-4 WEEKS)
     Route: 058
     Dates: start: 20230401, end: 20230530
  2. COMPOUND GLYCYRRHIZIN [Concomitant]
     Indication: Erythema
     Dosage: UNK
     Route: 048
  3. COMPOUND GLYCYRRHIZIN [Concomitant]
     Indication: Skin exfoliation
  4. HALOMETASONE [Concomitant]
     Active Substance: HALOMETASONE
     Indication: Erythema
     Dosage: UNK (EXTERNAL USE)
     Route: 065
  5. HALOMETASONE [Concomitant]
     Active Substance: HALOMETASONE
     Indication: Skin exfoliation

REACTIONS (9)
  - Immune system disorder [Recovering/Resolving]
  - Dermatitis atopic [Recovering/Resolving]
  - Eczema [Recovering/Resolving]
  - Rash erythematous [Recovering/Resolving]
  - Rash maculo-papular [Recovering/Resolving]
  - Pruritus [Recovering/Resolving]
  - Effusion [Recovering/Resolving]
  - Skin lesion [Recovering/Resolving]
  - Scab [Recovering/Resolving]

NARRATIVE: CASE EVENT DATE: 20230501
